FAERS Safety Report 22164774 (Version 3)
Quarter: 2024Q1

REPORT INFORMATION
  Report Type: Spontaneous
  Country: US (occurrence: US)
  Receive Date: 20230403
  Receipt Date: 20240320
  Transmission Date: 20240410
  Serious: No
  Sender: FDA-Public Use
  Company Number: US-BIOGEN-2023BI01182875

PATIENT
  Sex: Female
  Weight: 71.4 kg

DRUGS (11)
  1. AMPYRA [Suspect]
     Active Substance: DALFAMPRIDINE
     Indication: Multiple sclerosis
     Dosage: 10 MILLIGRAM, Q 12 HRS
     Route: 048
     Dates: start: 20220421
  2. TYSABRI [Suspect]
     Active Substance: NATALIZUMAB
     Indication: Multiple sclerosis
     Dosage: 300 MILLIGRAM, MONTHLY
     Route: 042
     Dates: start: 20220404
  3. AMBIEN [Concomitant]
     Active Substance: ZOLPIDEM TARTRATE
     Indication: Product used for unknown indication
     Dosage: 10 MILLIGRAM
     Route: 065
  4. PRINZIDE [Concomitant]
     Active Substance: HYDROCHLOROTHIAZIDE\LISINOPRIL
     Indication: Product used for unknown indication
     Dosage: 10-12.5 MG
     Route: 065
  5. ZESTORETIC [Concomitant]
     Active Substance: HYDROCHLOROTHIAZIDE\LISINOPRIL
     Indication: Product used for unknown indication
     Dosage: 10-12.5 MG
     Route: 065
  6. ERGOCALCIFEROL [Concomitant]
     Active Substance: ERGOCALCIFEROL
     Indication: Product used for unknown indication
     Dosage: 1.25 MILLIGRAM
     Route: 065
  7. CYANOCOBALAMIN [Concomitant]
     Active Substance: CYANOCOBALAMIN
     Indication: Product used for unknown indication
     Dosage: 1000 MCG/ML
     Route: 065
  8. NEURONTIN [Concomitant]
     Active Substance: GABAPENTIN
     Indication: Multiple sclerosis
     Dosage: 100 MILLIGRAM, TID, 1 CAPSULE (100 MG) BY MOUTH THREE TIMES A DAY
     Route: 048
  9. NEURONTIN [Concomitant]
     Active Substance: GABAPENTIN
     Dosage: 200 MILLIGRAM, TID, 2 CAPSULES (200 MG) BY MOUTH 3 TIMES A DAY
     Route: 048
  10. PROVIGIL [Concomitant]
     Active Substance: MODAFINIL
     Indication: Multiple sclerosis
     Dosage: 100 MILLIGRAM, QD ((1 TABLET) ORAL EVERY MORNING)
     Route: 048
  11. PROVIGIL [Concomitant]
     Active Substance: MODAFINIL
     Dosage: 200 MILLIGRAM, QD (2 TABLETS BY MOUTH EVERY MORNING)
     Route: 048
     Dates: start: 20221128, end: 20221201

REACTIONS (12)
  - Blood calcium increased [Unknown]
  - Blood glucose increased [Unknown]
  - Pain in extremity [Unknown]
  - Arthralgia [Unknown]
  - Eye pain [Recovered/Resolved]
  - Extraocular muscle disorder [Recovered/Resolved]
  - Multiple sclerosis pseudo relapse [Unknown]
  - Gait disturbance [Unknown]
  - Fatigue [Unknown]
  - Nausea [Unknown]
  - Paraesthesia [Unknown]
  - Asthenia [Unknown]
